FAERS Safety Report 7127804-9 (Version None)
Quarter: 2010Q4

REPORT INFORMATION
  Report Type: 
  Country: None (occurrence: None)
  Receive Date: 20101130
  Receipt Date: 20091208
  Transmission Date: 20110411
  Serious: No
  Sender: FDA-Public Use
  Company Number: 2009BI040355

PATIENT
  Age: 52 Year
  Sex: Male

DRUGS (1)
  1. TYSABRI [Suspect]
     Indication: MULTIPLE SCLEROSIS
     Route: 042
     Dates: start: 20091130

REACTIONS (5)
  - CHEST PAIN [None]
  - DYSSTASIA [None]
  - FATIGUE [None]
  - GAIT DISTURBANCE [None]
  - MUSCLE SPASMS [None]
